FAERS Safety Report 23967250 (Version 1)
Quarter: 2024Q2

REPORT INFORMATION
  Report Type: Spontaneous
  Country: US (occurrence: None)
  Receive Date: 20240612
  Receipt Date: 20240612
  Transmission Date: 20240716
  Serious: Yes (Hospitalization)
  Sender: FDA-Public Use
  Company Number: None

PATIENT
  Sex: Male
  Weight: 67.1 kg

DRUGS (1)
  1. FLUOROURACIL [Suspect]
     Active Substance: FLUOROURACIL
     Indication: Abdominal pain
     Dates: start: 20240313

REACTIONS (4)
  - Abdominal pain upper [None]
  - Pyrexia [None]
  - Neutropenia [None]
  - Muscle spasms [None]

NARRATIVE: CASE EVENT DATE: 20240530
